FAERS Safety Report 6933958-7 (Version None)
Quarter: 2010Q3

REPORT INFORMATION
  Report Type: 
  Country: None (occurrence: None)
  Receive Date: 20100820
  Receipt Date: 20100519
  Transmission Date: 20110219
  Serious: Yes (Hospitalization, Other)
  Sender: FDA-Public Use
  Company Number: US-BAYER-200936820NA

PATIENT
  Age: 51 Year
  Sex: Female
  Weight: 86 kg

DRUGS (20)
  1. YASMIN [Suspect]
     Indication: PRODUCT USED FOR UNKNOWN INDICATION
     Dates: start: 20020901, end: 20030301
  2. LISINOPRIL [Concomitant]
     Indication: HYPERTENSION
     Dates: start: 19900101
  3. TRIAMTERENE [Concomitant]
     Indication: DIURETIC THERAPY
     Dates: start: 19900101, end: 20070101
  4. TORSEMIDE [Concomitant]
  5. LIPITOR [Concomitant]
     Dates: start: 20070101
  6. LEVOXYL [Concomitant]
     Indication: HYPOTHYROIDISM
     Dates: start: 19900101
  7. WARFARIN [Concomitant]
     Dates: start: 20030401, end: 20030601
  8. COUMADIN [Concomitant]
  9. COUMADIN [Concomitant]
     Dates: start: 20030601, end: 20030701
  10. KRISTALOSE [Concomitant]
     Dates: start: 20030301
  11. IBUPROFEN [Concomitant]
     Dates: start: 20030101
  12. DOSTINEX [Concomitant]
     Dates: start: 20021101
  13. NULYTELY [Concomitant]
     Dates: start: 20021101
  14. ALPRAZOLAM [Concomitant]
     Dates: start: 20021001
  15. TRIAMTERENE AND HYDROCHLOROTHIAZIDE [Concomitant]
  16. PRILOSEC [Concomitant]
  17. IRON [Concomitant]
  18. FOLIC ACID [Concomitant]
  19. VITAMIN B COMPLEX WITH C [Concomitant]
  20. VITAMIN E [Concomitant]

REACTIONS (5)
  - CHEST PAIN [None]
  - DEEP VEIN THROMBOSIS [None]
  - DYSPNOEA [None]
  - PAIN IN EXTREMITY [None]
  - PULMONARY EMBOLISM [None]
